FAERS Safety Report 9881710 (Version 1)
Quarter: 2014Q1

REPORT INFORMATION
  Report Type: Spontaneous
  Country: US (occurrence: US)
  Receive Date: 20140207
  Receipt Date: 20140207
  Transmission Date: 20141002
  Serious: No
  Sender: FDA-Public Use
  Company Number: US-GILEAD-2011-0045319

PATIENT
  Sex: Male

DRUGS (3)
  1. TRUVADA [Suspect]
     Indication: HIV INFECTION
     Dosage: UNK
     Dates: start: 2008
  2. ISENTRESS [Concomitant]
     Indication: HIV INFECTION
     Dosage: UNK
     Dates: start: 2008
  3. SELZENTRY [Concomitant]
     Indication: HIV INFECTION
     Dosage: UNK
     Dates: start: 2008

REACTIONS (2)
  - Eustachian tube patulous [Unknown]
  - Lipodystrophy acquired [Unknown]
